FAERS Safety Report 6035630-7 (Version None)
Quarter: 2009Q1

REPORT INFORMATION
  Report Type: 
  Country: None (occurrence: None)
  Receive Date: 20090113
  Receipt Date: 20090106
  Transmission Date: 20090719
  Serious: Yes (Hospitalization, Other)
  Sender: FDA-Public Use
  Company Number: PHEH2007US03717

PATIENT
  Sex: Female
  Weight: 93.787 kg

DRUGS (18)
  1. ZOMETA [Suspect]
     Indication: MULTIPLE MYELOMA
     Route: 042
  2. PAXIL [Concomitant]
     Dosage: 60 MG, UNK
  3. TRAZODONE HCL [Concomitant]
     Dosage: 100 MG, QHS
     Route: 048
  4. CLONAZEPAM [Concomitant]
     Dosage: 0.5MG QAM AND 1.0MG QPM
  5. LASIX [Concomitant]
     Dosage: 20 MG, UNK
  6. K-TAB [Concomitant]
     Dosage: 10 MEQ, QID
  7. LORTAB [Concomitant]
     Dosage: 7.5/ 500 MG
  8. REGLAN [Concomitant]
     Dosage: 10 MG, UNK
  9. XANAX [Concomitant]
     Dosage: 0.5 MG, BID
     Route: 048
  10. M.V.I. [Concomitant]
     Dosage: 1 TAB QD
  11. MORPHINE [Concomitant]
     Dosage: UNK
  12. MAGNESIUM OXIDE [Concomitant]
     Dosage: 800 MG, BID
     Route: 048
  13. FOSINOPRIL SODIUM [Concomitant]
     Dosage: 40 MG, QD
     Route: 048
  14. HYDROCODONE BITARTRATE + ACETAMINOPHEN [Concomitant]
     Dosage: 10 / 500MG
  15. FENTANYL [Concomitant]
     Dosage: 25 MCG/HR
     Route: 062
  16. CIPROFLOXACIN HCL [Concomitant]
     Dosage: 500 MG, UNK
  17. INNOHEP                                 /GFR/ [Concomitant]
  18. CARVEDILOL [Concomitant]
     Dosage: 25 MG, UNK

REACTIONS (23)
  - ABSCESS [None]
  - ANXIETY [None]
  - BACK PAIN [None]
  - CARDIAC FAILURE CONGESTIVE [None]
  - DECREASED INTEREST [None]
  - DEEP VEIN THROMBOSIS [None]
  - DEPRESSION [None]
  - EATING DISORDER [None]
  - GINGIVAL INFECTION [None]
  - INCISIONAL DRAINAGE [None]
  - INJURY [None]
  - MIGRAINE [None]
  - MOUTH ULCERATION [None]
  - NAUSEA [None]
  - ORAL PAIN [None]
  - ORAL SURGERY [None]
  - OSTEOMYELITIS [None]
  - OSTEONECROSIS [None]
  - PAIN [None]
  - SLEEP DISORDER [None]
  - SWELLING FACE [None]
  - TENDERNESS [None]
  - VOMITING [None]
